FAERS Safety Report 6120387-1 (Version None)
Quarter: 2009Q1

REPORT INFORMATION
  Report Type: 
  Country: None (occurrence: None)
  Receive Date: 20090316
  Receipt Date: 20090316
  Transmission Date: 20090719
  Serious: Yes (Other)
  Sender: FDA-Public Use
  Company Number: None

PATIENT
  Age: 18 Year
  Sex: Female
  Weight: 45.8133 kg

DRUGS (1)
  1. TUBERCULIN, PURIFIED PROTEIN 5 TU/0.1 ML JHP PHARMACEUTICALS, [Suspect]
     Indication: TUBERCULIN TEST
     Dosage: 0.01 ML ONCE SUBDERMAL
     Route: 059
     Dates: start: 20090310, end: 20090313

REACTIONS (1)
  - TUBERCULIN TEST POSITIVE [None]
